FAERS Safety Report 10390750 (Version 2)
Quarter: 2014Q3

REPORT INFORMATION
  Report Type: Spontaneous
  Country: US (occurrence: US)
  Receive Date: 20140818
  Receipt Date: 20140818
  Transmission Date: 20150326
  Serious: Yes (Hospitalization, Other)
  Sender: FDA-Public Use
  Company Number: US-009507513-2008-178512-NL

PATIENT
  Sex: Female
  Weight: 49.9 kg

DRUGS (1)
  1. NUVARING [Suspect]
     Active Substance: ETHINYL ESTRADIOL\ETONOGESTREL
     Indication: PRODUCT USED FOR UNKNOWN INDICATION
     Dosage: CONTINUING: NO
     Route: 067
     Dates: start: 200606, end: 200609

REACTIONS (10)
  - Hypercoagulation [Unknown]
  - Pulmonary granuloma [Unknown]
  - Leukocytosis [Unknown]
  - Pulmonary embolism [Recovered/Resolved]
  - Pneumonia [Recovered/Resolved]
  - Pulmonary mass [Unknown]
  - Deep vein thrombosis [Recovered/Resolved with Sequelae]
  - Pulmonary infarction [Recovered/Resolved with Sequelae]
  - Rash pruritic [Recovering/Resolving]
  - Keloid scar [Unknown]

NARRATIVE: CASE EVENT DATE: 20060912
